FAERS Safety Report 23226116 (Version 1)
Quarter: 2023Q4

REPORT INFORMATION
  Report Type: Report from Study
  Country: US (occurrence: None)
  Receive Date: 20231124
  Receipt Date: 20231124
  Transmission Date: 20240110
  Serious: Yes (Life-Threatening, Other)
  Sender: FDA-Public Use
  Company Number: 2023A264945

PATIENT

DRUGS (2)
  1. SYMBICORT [Suspect]
     Active Substance: BUDESONIDE\FORMOTEROL FUMARATE DIHYDRATE
     Indication: Chronic obstructive pulmonary disease
     Dosage: UNKNOWN, UNKNOWN UNKNOWN
     Route: 055
     Dates: start: 2010
  2. SYMBICORT [Suspect]
     Active Substance: BUDESONIDE\FORMOTEROL FUMARATE DIHYDRATE
     Indication: Asthma
     Dosage: UNKNOWN, UNKNOWN UNKNOWN
     Route: 055
     Dates: start: 2010

REACTIONS (12)
  - Brain neoplasm malignant [Unknown]
  - Tooth loss [Unknown]
  - Blindness unilateral [Not Recovered/Not Resolved]
  - Deafness unilateral [Not Recovered/Not Resolved]
  - Ataxia [Not Recovered/Not Resolved]
  - Vertigo [Not Recovered/Not Resolved]
  - Generalised tonic-clonic seizure [Recovered/Resolved]
  - Diabetes mellitus [Unknown]
  - Dyspnoea exertional [Not Recovered/Not Resolved]
  - Cough [Not Recovered/Not Resolved]
  - Hallucination [Unknown]
  - Intentional product misuse [Unknown]
